FAERS Safety Report 7754365-3 (Version None)
Quarter: 2011Q3

REPORT INFORMATION
  Report Type: 
  Country: None (occurrence: None)
  Receive Date: 20110915
  Receipt Date: 20110912
  Transmission Date: 20111222
  Serious: Yes (Hospitalization, Other)
  Sender: FDA-Public Use
  Company Number: US-PFIZER INC-001-0981-M0001443

PATIENT
  Sex: Female
  Weight: 53.52 kg

DRUGS (5)
  1. PRILOSEC [Concomitant]
     Dates: start: 19980501
  2. LIPITOR [Suspect]
     Indication: BLOOD CHOLESTEROL INCREASED
     Route: 048
     Dates: start: 19980501
  3. ATIVAN [Concomitant]
  4. CARDURA [Suspect]
     Indication: HYPERTENSION
     Dosage: TID
     Route: 048
     Dates: start: 19980501
  5. LASIX [Concomitant]

REACTIONS (1)
  - CARDIAC FAILURE CONGESTIVE [None]
